FAERS Safety Report 9201610 (Version 2)
Quarter: 2013Q3

REPORT INFORMATION
  Report Type: Spontaneous
  Country: US (occurrence: US)
  Receive Date: 20130401
  Receipt Date: 20130701
  Transmission Date: 20140515
  Serious: Yes (Hospitalization)
  Sender: FDA-Public Use
  Company Number: US-JNJFOC-20130315763

PATIENT
  Age: 65 Year
  Sex: Female
  Weight: 108.86 kg

DRUGS (15)
  1. XARELTO [Suspect]
     Indication: PULMONARY EMBOLISM
     Route: 048
     Dates: start: 20130318, end: 20130320
  2. XARELTO [Suspect]
     Indication: DEEP VEIN THROMBOSIS
     Route: 048
     Dates: start: 20130318, end: 20130320
  3. BETAMETHASONE/CLOTRIMAZOLE [Concomitant]
     Route: 061
  4. AMARYL [Concomitant]
     Indication: DIABETES MELLITUS
     Dosage: 8-YEARS
     Route: 048
  5. DILTIAZEM [Concomitant]
     Indication: BLOOD PRESSURE
     Dosage: 3-4 YEARS
     Route: 048
  6. LOZAR [Concomitant]
     Indication: BLOOD PRESSURE
     Dosage: 3-4 YEARS
     Route: 048
  7. ALBUTEROL [Concomitant]
     Indication: DYSPNOEA
     Dosage: 2 PUFFS EVERY 4 HOURS AS NEEDED
     Route: 055
  8. ALBUTEROL [Concomitant]
     Indication: WHEEZING
     Dosage: 2 PUFFS EVERY 4 HOURS AS NEEDED
     Route: 055
  9. ALBUTEROL [Concomitant]
     Indication: ASTHMA
     Dosage: 2 PUFFS EVERY 4 HOURS AS NEEDED
     Route: 055
  10. ADVAIR DISKUS [Concomitant]
     Route: 055
  11. JANUVIA [Concomitant]
     Route: 048
  12. CARDIZEM [Concomitant]
     Route: 048
  13. MUCINEX [Concomitant]
     Route: 048
  14. TRIAMCINOLONE [Concomitant]
     Indication: RASH
     Route: 061
  15. PROMETHAZINE WITH CODEINE [Concomitant]
     Indication: COUGH
     Route: 048

REACTIONS (1)
  - Drug hypersensitivity [Recovered/Resolved]
